FAERS Safety Report 7236923-8 (Version None)
Quarter: 2011Q1

REPORT INFORMATION
  Report Type: 
  Country: None (occurrence: None)
  Receive Date: 20110121
  Receipt Date: 20110113
  Transmission Date: 20110831
  Serious: Yes (Hospitalization, Other)
  Sender: FDA-Public Use
  Company Number: US-ASTRAZENECA-2007UW19018

PATIENT
  Age: 9275 Day
  Sex: Female
  Weight: 183.7 kg

DRUGS (21)
  1. SEROQUEL [Suspect]
     Route: 048
     Dates: start: 19980204
  2. CALCIUM 500 AND VITAMIN D [Concomitant]
     Dates: start: 20091021
  3. THEOPHYLLINE [Concomitant]
     Dates: start: 19980301
  4. LEVOTHYROXINE SODIUM [Concomitant]
     Indication: HYPOTHYROIDISM
     Dosage: 100 MCG TO 200 MCG
     Route: 048
     Dates: start: 19940923
  5. ALBUTEROL [Concomitant]
     Dates: start: 19980127
  6. NAPROXEN SODIUM [Concomitant]
     Indication: PAIN
     Dosage: TK 1 T PO BID WITH FOOD
     Route: 048
     Dates: start: 19980412
  7. SEROQUEL [Suspect]
     Route: 048
  8. SEROQUEL [Suspect]
     Route: 048
  9. MULTI-VITAMIN [Concomitant]
     Dates: start: 20091021
  10. PAXIL [Concomitant]
     Dates: start: 20070801
  11. SEROQUEL [Suspect]
     Indication: SCHIZOAFFECTIVE DISORDER
     Dosage: 25-50 MG
     Route: 048
     Dates: start: 19971117
  12. PAXIL [Concomitant]
     Route: 048
     Dates: start: 19971106
  13. WELLBUTRIN [Concomitant]
     Dates: start: 20070801
  14. PREDNISONE [Concomitant]
     Dates: start: 19980301
  15. FERROUS SULFATE TAB [Concomitant]
     Dates: start: 20091021
  16. SEROQUEL [Suspect]
     Route: 048
     Dates: start: 19971224
  17. PAXIL [Concomitant]
     Dosage: 40 MG TO 80 MG
     Route: 048
     Dates: start: 19980220
  18. SEROQUEL [Suspect]
     Dosage: 25 MG, 100 MG, 200 MG
     Route: 048
     Dates: start: 19980426
  19. SEROQUEL [Suspect]
     Route: 048
  20. CYCRIN [Concomitant]
     Dates: start: 19980301
  21. TRIAMTERENE AND HYDROCHLOROTHIAZIDE [Concomitant]
     Dosage: 75/50 MG EVERYDAY
     Route: 048
     Dates: start: 19980301

REACTIONS (8)
  - BLOOD CHOLESTEROL INCREASED [None]
  - DIABETIC NEUROPATHY [None]
  - HYPERCHOLESTEROLAEMIA [None]
  - GLUCOSE TOLERANCE IMPAIRED [None]
  - TYPE 1 DIABETES MELLITUS [None]
  - TYPE 2 DIABETES MELLITUS [None]
  - POLYNEUROPATHY [None]
  - NEUROPATHY PERIPHERAL [None]
